FAERS Safety Report 14023964 (Version 1)
Quarter: 2017Q3

REPORT INFORMATION
  Report Type: Spontaneous
  Country: US (occurrence: US)
  Receive Date: 20170929
  Receipt Date: 20170929
  Transmission Date: 20171128
  Serious: No
  Sender: FDA-Public Use
  Company Number: US-BAYER-2017-167769

PATIENT
  Sex: Female

DRUGS (2)
  1. ALEVE [Suspect]
     Active Substance: NAPROXEN SODIUM
     Indication: PAIN
     Route: 048
     Dates: start: 2016
  2. BAYER ASPIRIN [Suspect]
     Active Substance: ASPIRIN
     Dosage: 2 UNK, UNK

REACTIONS (4)
  - Asthenia [Unknown]
  - Blood pressure increased [Unknown]
  - Incorrect drug administration duration [Unknown]
  - Feeling abnormal [Not Recovered/Not Resolved]

NARRATIVE: CASE EVENT DATE: 20170831
